FAERS Safety Report 17479096 (Version 1)
Quarter: 2020Q1

REPORT INFORMATION
  Report Type: Spontaneous
  Country: US (occurrence: US)
  Receive Date: 20200229
  Receipt Date: 20200229
  Transmission Date: 20200409
  Serious: Yes (Hospitalization, Other)
  Sender: FDA-Public Use
  Company Number: US-ACCORD-174228

PATIENT
  Age: 46 Year
  Sex: Female

DRUGS (2)
  1. QUETIAPINE. [Suspect]
     Active Substance: QUETIAPINE
     Indication: PRODUCT USED FOR UNKNOWN INDICATION
     Dosage: HIGH-DOSE
  2. GARCINIA GUMMI-GUTTA/GARCINIA GUMMI-GUTTA EXTRACT [DIETARY SUPPLEMENT] [Interacting]
     Active Substance: DIETARY SUPPLEMENT
     Indication: PRODUCT USED FOR UNKNOWN INDICATION
     Route: 048

REACTIONS (3)
  - Herbal interaction [Unknown]
  - Drug interaction [Unknown]
  - Drug-induced liver injury [Recovering/Resolving]
